FAERS Safety Report 8777009 (Version 2)
Quarter: 2012Q4

REPORT INFORMATION
  Report Type: 
  Country: US (occurrence: US)
  Receive Date: 20120911
  Receipt Date: 20121012
  Transmission Date: 20130627
  Serious: Yes (Other)
  Sender: FDA-Public Use
  Company Number: US-BAYER-2012-094077

PATIENT
  Age: 41 Year
  Sex: Female
  Weight: 122 kg

DRUGS (1)
  1. BAYER ADVANCED ASPIRIN REGULAR STRENGTH [Suspect]
     Indication: DYSMENORRHOEA
     Dosage: 3 DF, ONCE, bottle count 24s
     Route: 048
     Dates: start: 20120904

REACTIONS (2)
  - Choking [Recovered/Resolved]
  - Vomiting [Recovered/Resolved]
